FAERS Safety Report 8984782 (Version 2)
Quarter: 2013Q1

REPORT INFORMATION
  Report Type: Spontaneous
  Country: DE (occurrence: DE)
  Receive Date: 20121225
  Receipt Date: 20130301
  Transmission Date: 20140127
  Serious: Yes (Other)
  Sender: FDA-Public Use
  Company Number: DE-JNJFOC-20121208833

PATIENT
  Age: 91 Year
  Sex: Female
  Weight: 63 kg

DRUGS (11)
  1. XARELTO [Suspect]
     Indication: CEREBROVASCULAR ACCIDENT PROPHYLAXIS
     Route: 048
     Dates: start: 20121121, end: 20121202
  2. XARELTO [Suspect]
     Indication: CEREBROVASCULAR ACCIDENT PROPHYLAXIS
     Route: 048
     Dates: start: 20121203, end: 20130113
  3. XARELTO [Suspect]
     Indication: ATRIAL FIBRILLATION
     Route: 048
     Dates: start: 20121121, end: 20121202
  4. XARELTO [Suspect]
     Indication: ATRIAL FIBRILLATION
     Route: 048
     Dates: start: 20121203, end: 20130113
  5. CONCOR COR [Concomitant]
     Route: 065
     Dates: start: 201212
  6. CONCOR COR [Concomitant]
     Route: 065
     Dates: end: 201212
  7. L-THYROX [Concomitant]
     Route: 065
  8. MAGNESIUM [Concomitant]
     Route: 065
  9. TORASEMIDE [Concomitant]
     Route: 065
  10. NITRENDIPIN [Concomitant]
     Route: 065
     Dates: end: 201212
  11. DIGIMERCK [Concomitant]
     Route: 065
     Dates: start: 201212

REACTIONS (2)
  - Asthma [Unknown]
  - Syncope [Recovered/Resolved]
